FAERS Safety Report 14639085 (Version 2)
Quarter: 2018Q2

REPORT INFORMATION
  Report Type: Spontaneous
  Country: US (occurrence: US)
  Receive Date: 20180315
  Receipt Date: 20180517
  Transmission Date: 20180711
  Serious: Yes (Other)
  Sender: FDA-Public Use
  Company Number: US-STRIDES ARCOLAB LIMITED-2018SP001841

PATIENT

DRUGS (5)
  1. TACROLIMUS. [Suspect]
     Active Substance: TACROLIMUS
     Dosage: 1 MG PER DAY
     Route: 065
  2. PREDNISOLONE. [Suspect]
     Active Substance: PREDNISOLONE
     Indication: RENAL TRANSPLANT
     Dosage: UNK
     Route: 065
  3. PREDNISOLONE. [Suspect]
     Active Substance: PREDNISOLONE
     Dosage: 1 MG, UNKNOWN
     Route: 065
  4. TACROLIMUS. [Suspect]
     Active Substance: TACROLIMUS
     Indication: RENAL TRANSPLANT
     Dosage: UNK
     Route: 065
  5. MYCOPHENOLATE MOFETIL. [Suspect]
     Active Substance: MYCOPHENOLATE MOFETIL
     Indication: RENAL TRANSPLANT
     Dosage: UNK
     Route: 065

REACTIONS (5)
  - Skin erosion [Recovered/Resolved]
  - Pemphigoid [Recovered/Resolved]
  - Renal transplant failure [Unknown]
  - Blister [Recovered/Resolved]
  - Unmasking of previously unidentified disease [Unknown]
